FAERS Safety Report 5726362-0 (Version None)
Quarter: 2008Q2

REPORT INFORMATION
  Report Type: 
  Country: None (occurrence: None)
  Receive Date: 20080502
  Receipt Date: 20070413
  Transmission Date: 20081010
  Serious: No
  Sender: FDA-Public Use
  Company Number: US-BAYER-200711127BCC

PATIENT
  Sex: Female

DRUGS (1)
  1. RID [Suspect]
     Indication: PROPHYLAXIS
     Route: 061

REACTIONS (2)
  - HEART RATE IRREGULAR [None]
  - PALPITATIONS [None]
